FAERS Safety Report 5385202-2 (Version None)
Quarter: 2007Q3

REPORT INFORMATION
  Report Type: 
  Country: None (occurrence: None)
  Receive Date: 20070709
  Receipt Date: 20070621
  Transmission Date: 20080115
  Serious: Yes (Life-Threatening, Hospitalization)
  Sender: FDA-Public Use
  Company Number: DSA_30151_2007

PATIENT
  Sex: Male

DRUGS (3)
  1. TAVOR /00273201/ (TAVOR) [Suspect]
     Dosage: (ORAL)
     Route: 048
  2. ATOSIL /00133602/ (ATOSIL) [Suspect]
  3. TRAMAL (TRAMAL) (NOT SPECIFIED) [Suspect]
     Dosage: (ORAL)
     Route: 048

REACTIONS (4)
  - ASPIRATION [None]
  - COMA [None]
  - MULTIPLE DRUG OVERDOSE INTENTIONAL [None]
  - SUICIDE ATTEMPT [None]
